FAERS Safety Report 19741255 (Version 1)
Quarter: 2021Q3

REPORT INFORMATION
  Report Type: Spontaneous
  Country: KR (occurrence: KR)
  Receive Date: 20210825
  Receipt Date: 20210825
  Transmission Date: 20211014
  Serious: Yes (Other)
  Sender: FDA-Public Use
  Company Number: KR-SUN PHARMACEUTICAL INDUSTRIES LTD-2021R1-308912

PATIENT
  Age: 22 Year
  Sex: Male

DRUGS (3)
  1. OSELTAMIVIR [Suspect]
     Active Substance: OSELTAMIVIR
     Indication: PNEUMONIA VIRAL
     Dosage: UNK
     Route: 065
  2. TICARCILLIN/CLAVULANATE [Suspect]
     Active Substance: CLAVULANATE POTASSIUM\TICARCILLIN
     Indication: PNEUMONIA VIRAL
     Dosage: UNK
     Route: 065
  3. AZITHROMYCIN ANHYDROUS. [Suspect]
     Active Substance: AZITHROMYCIN ANHYDROUS
     Indication: PNEUMONIA VIRAL
     Dosage: UNK
     Route: 065

REACTIONS (1)
  - Disease progression [Unknown]
